FAERS Safety Report 21245096 (Version 7)
Quarter: 2023Q4

REPORT INFORMATION
  Report Type: Report from Study
  Country: US (occurrence: US)
  Receive Date: 20220823
  Receipt Date: 20231204
  Transmission Date: 20240110
  Serious: Yes (Hospitalization, Other)
  Sender: FDA-Public Use
  Company Number: US-ABBVIE-22K-163-4458503-00

PATIENT
  Age: 63 Year
  Sex: Male

DRUGS (5)
  1. IMBRUVICA [Suspect]
     Active Substance: IBRUTINIB
     Indication: B-cell small lymphocytic lymphoma
     Route: 048
     Dates: start: 20200616, end: 2022
  2. IMBRUVICA [Suspect]
     Active Substance: IBRUTINIB
     Indication: B-cell small lymphocytic lymphoma
     Route: 048
     Dates: start: 202306
  3. LORAZEPAM [Concomitant]
     Active Substance: LORAZEPAM
     Indication: Product used for unknown indication
  4. GABAPENTIN [Concomitant]
     Active Substance: GABAPENTIN
     Indication: Product used for unknown indication
     Dosage: .
  5. GABAPENTIN [Concomitant]
     Active Substance: GABAPENTIN
     Indication: Product used for unknown indication
     Dosage: DOSE HAS BEEN CHANGED TO 100MG, 1 TABLET 3 TIMES DAILY

REACTIONS (11)
  - Dehydration [Unknown]
  - Renal failure [Recovering/Resolving]
  - Blood creatinine abnormal [Unknown]
  - Colectomy [Unknown]
  - Ileostomy [Unknown]
  - Bronchitis bacterial [Unknown]
  - End stage renal disease [Recovering/Resolving]
  - Leukaemia [Recovering/Resolving]
  - Internal haemorrhage [Recovering/Resolving]
  - Gastrointestinal disorder [Unknown]
  - Appetite disorder [Unknown]

NARRATIVE: CASE EVENT DATE: 20220701
